FAERS Safety Report 5483768-5 (Version None)
Quarter: 2007Q4

REPORT INFORMATION
  Report Type: 
  Country: None (occurrence: None)
  Receive Date: 20071012
  Receipt Date: 20071009
  Transmission Date: 20080405
  Serious: Yes (Congenital Anomaly)
  Sender: FDA-Public Use
  Company Number: A0686675A

PATIENT
  Sex: Male

DRUGS (3)
  1. VALTREX [Suspect]
     Indication: GENITAL HERPES
  2. PRENATAL VITAMINS [Concomitant]
  3. MACROBID [Concomitant]
     Indication: INFECTION

REACTIONS (3)
  - CONGENITAL BRAIN DAMAGE [None]
  - DEAFNESS CONGENITAL [None]
  - DRUG EXPOSURE DURING PREGNANCY [None]
